FAERS Safety Report 8047529-5 (Version None)
Quarter: 2012Q1

REPORT INFORMATION
  Report Type: 
  Country: None (occurrence: None)
  Receive Date: 20120116
  Receipt Date: 20120111
  Transmission Date: 20120608
  Serious: Yes (Other)
  Sender: FDA-Public Use
  Company Number: BR-ABBOTT-12P-020-0892284-00

PATIENT
  Sex: Female

DRUGS (3)
  1. HUMIRA [Suspect]
     Indication: RHEUMATOID ARTHRITIS
     Route: 058
     Dates: start: 20110301
  2. OSSEOPROT [Concomitant]
     Indication: BONE DISORDER
     Dosage: 1 TABLET DAILY
     Route: 048
  3. HUMIRA [Suspect]
     Route: 058
     Dates: start: 20111201

REACTIONS (9)
  - BUNION [None]
  - FOOT DEFORMITY [None]
  - INJECTION SITE PRURITUS [None]
  - INJECTION SITE ERYTHEMA [None]
  - ARTHRODESIS [None]
  - TENDON RUPTURE [None]
  - NECK PAIN [None]
  - ARTHRALGIA [None]
  - POST PROCEDURAL INFECTION [None]
